FAERS Safety Report 4918035-9 (Version None)
Quarter: 2006Q1

REPORT INFORMATION
  Report Type: 
  Country: None (occurrence: None)
  Receive Date: 20060215
  Receipt Date: 20060125
  Transmission Date: 20060701
  Serious: Yes (Life-Threatening, Hospitalization)
  Sender: FDA-Public Use
  Company Number: 221640

PATIENT
  Age: 47 Year
  Sex: Female
  Weight: 92 kg

DRUGS (5)
  1. HERCEPTIN [Suspect]
     Indication: BREAST CANCER
     Dosage: 736 MG, INTRAVENOUS
     Route: 042
     Dates: start: 20060102
  2. EPIRUBICIN [Suspect]
     Indication: BREAST CANCER
     Dosage: 187 MG, INTRAVENOUS
     Route: 042
     Dates: start: 20060103
  3. CYCLOPHOSPHAMIDE [Suspect]
     Indication: BREAST CANCER
     Dosage: 1248MG, INTRAVENOUS
     Route: 042
     Dates: start: 20060103
  4. DEXAMETHASONE SODIUM PHOSPHATE [Concomitant]
  5. NOVABAN(TROPISETRON HYDROCHLORIDE0 [Concomitant]

REACTIONS (2)
  - DIVERTICULAR PERFORATION [None]
  - WHITE BLOOD CELL COUNT DECREASED [None]
